FAERS Safety Report 9846278 (Version 1)
Quarter: 2013Q4

REPORT INFORMATION
  Report Type: Spontaneous
  Country: US (occurrence: None)
  Receive Date: 20131223
  Receipt Date: 20131223
  Transmission Date: 20140711
  Serious: Yes (Other)
  Sender: FDA-Public Use
  Company Number: CABO-13003267

PATIENT
  Age: 52 Year
  Sex: Female

DRUGS (3)
  1. COMETRIQ [Suspect]
     Indication: CHOLANGIOCARCINOMA
     Dosage: OFF X 7D
     Route: 048
     Dates: start: 20130513, end: 20130903
  2. AMBIEN (ZOLPIDEM TARTATE) [Concomitant]
  3. ACIPHEX (RABEPRAZOLE SODIUM) [Concomitant]

REACTIONS (5)
  - Ear pain [None]
  - Ear infection [None]
  - Pain in jaw [None]
  - Off label use [None]
  - Rash papular [None]
